FAERS Safety Report 5424639-X (Version None)
Quarter: 2007Q3

REPORT INFORMATION
  Report Type: 
  Country: None (occurrence: None)
  Receive Date: 20070731
  Receipt Date: 20070329
  Transmission Date: 20080115
  Serious: No
  Sender: FDA-Public Use
  Company Number: 2007PV032776

PATIENT
  Sex: Female

DRUGS (1)
  1. EXENATIDE(EXENATIDE) PEN,DISPOSABLE [Suspect]
     Indication: TYPE 2 DIABETES MELLITUS
     Dosage: 10 UG, SUBCUTANEOUS
     Route: 058

REACTIONS (1)
  - DYSFUNCTIONAL UTERINE BLEEDING [None]
